FAERS Safety Report 25460546 (Version 1)
Quarter: 2025Q2

REPORT INFORMATION
  Report Type: Spontaneous
  Country: US (occurrence: None)
  Receive Date: 20250619
  Receipt Date: 20250619
  Transmission Date: 20250717
  Serious: Yes (Hospitalization)
  Sender: FDA-CTU
  Company Number: None

PATIENT
  Age: 55 Year
  Sex: Female

DRUGS (1)
  1. TRETINOIN [Suspect]
     Active Substance: TRETINOIN
     Dosage: 5 CAPSULES TWICE A DAY ?

REACTIONS (4)
  - Headache [None]
  - Dry eye [None]
  - Insomnia [None]
  - Pain [None]
